FAERS Safety Report 23091328 (Version 1)
Quarter: 2023Q4

REPORT INFORMATION
  Report Type: Spontaneous
  Country: GR (occurrence: None)
  Receive Date: 20231020
  Receipt Date: 20231020
  Transmission Date: 20240110
  Serious: Yes (Life-Threatening, Other)
  Sender: FDA-Public Use
  Company Number: 2023A234279

PATIENT
  Age: 38 Year
  Sex: Male
  Weight: 70 kg

DRUGS (10)
  1. ROSUVASTATIN [Suspect]
     Active Substance: ROSUVASTATIN
     Indication: Coronary artery disease
     Dosage: 5.0MG UNKNOWN
     Route: 048
     Dates: start: 20220921, end: 20221009
  2. ROSUVASTATIN [Suspect]
     Active Substance: ROSUVASTATIN
     Indication: Hypercholesterolaemia
     Dosage: 5.0MG UNKNOWN
     Route: 048
     Dates: start: 20220921, end: 20221009
  3. SIMVASTATIN [Suspect]
     Active Substance: SIMVASTATIN
     Indication: Hypercholesterolaemia
     Dosage: 10.0MG UNKNOWN
     Dates: start: 20230510, end: 20230525
  4. SIMVASTATIN [Suspect]
     Active Substance: SIMVASTATIN
     Indication: Coronary artery disease
     Dosage: 10.0MG UNKNOWN
     Dates: start: 20230510, end: 20230525
  5. ATORVASTATIN [Suspect]
     Active Substance: ATORVASTATIN
     Indication: Coronary artery disease
     Dosage: UNKNOWN
     Dates: start: 20220707, end: 20220831
  6. ATORVASTATIN [Suspect]
     Active Substance: ATORVASTATIN
     Indication: Hypercholesterolaemia
     Dosage: UNKNOWN
     Dates: start: 20220707, end: 20220831
  7. PITAVASTATIN [Suspect]
     Active Substance: PITAVASTATIN
     Indication: Coronary artery disease
     Dosage: 5.0MG UNKNOWN
     Dates: start: 20230113, end: 20230206
  8. PITAVASTATIN [Suspect]
     Active Substance: PITAVASTATIN
     Indication: Hypercholesterolaemia
     Dosage: 5.0MG UNKNOWN
     Dates: start: 20230113, end: 20230206
  9. ATORVASTATIN\EZETIMIBE [Suspect]
     Active Substance: ATORVASTATIN\EZETIMIBE
     Indication: Hypercholesterolaemia
     Dosage: UNKNOWN
     Dates: start: 20220901, end: 20220913
  10. ATORVASTATIN\EZETIMIBE [Suspect]
     Active Substance: ATORVASTATIN\EZETIMIBE
     Indication: Coronary artery disease
     Dosage: UNKNOWN
     Dates: start: 20220901, end: 20220913

REACTIONS (3)
  - Gamma-glutamyltransferase [Unknown]
  - Aspartate aminotransferase increased [Unknown]
  - Alanine aminotransferase increased [Unknown]
